FAERS Safety Report 16956222 (Version 1)
Quarter: 2020Q3

REPORT INFORMATION
  Report Type: Spontaneous
  Country: FR (occurrence: FR)
  Receive Date: 20191024
  Receipt Date: 20191024
  Transmission Date: 20201105
  Serious: Yes (Hospitalization)
  Sender: FDA-Public Use
  Company Number: FR-AUROBINDO-AUR-APL-2019-068949

PATIENT
  Age: 26 Year
  Sex: Female
  Weight: 55 kg

DRUGS (13)
  1. EPHEDRINE. [Suspect]
     Active Substance: EPHEDRINE
     Indication: ANAESTHESIA
     Dosage: 24 MILLIGRAM, TOTAL
     Route: 042
     Dates: start: 20190911
  2. HYPNOMIDATE [Suspect]
     Indication: ANAESTHESIA
     Dosage: 20 MILLIGRAM, TOTAL
     Route: 042
     Dates: start: 20190911
  3. PHENYLEPHRINE [Suspect]
     Active Substance: PHENYLEPHRINE HYDROCHLORIDE
     Indication: ANAESTHESIA
     Dosage: 50 MICROGRAM, TOTAL
     Route: 042
     Dates: start: 20190911
  4. PROPOFOL. [Suspect]
     Active Substance: PROPOFOL
     Indication: ANAESTHESIA
     Dosage: 438 MILLIGRAM, TOTAL
     Route: 042
     Dates: start: 20190911
  5. EXACYL [Suspect]
     Active Substance: TRANEXAMIC ACID
     Indication: ANAESTHESIA
     Dosage: 1 GRAM, TOTAL
     Route: 042
     Dates: start: 20190911
  6. AUGMENTIN [Suspect]
     Active Substance: AMOXICILLIN\CLAVULANATE POTASSIUM
     Indication: ANTIBIOTIC PROPHYLAXIS
     Dosage: 2 GRAM, TOTAL
     Route: 042
     Dates: start: 20190911
  7. SUFENTANIL [Suspect]
     Active Substance: SUFENTANIL
     Indication: ANAESTHESIA
     Dosage: 20 MICROGRAM, TOTAL
     Route: 042
     Dates: start: 20190911
  8. TRAMADOL. [Suspect]
     Active Substance: TRAMADOL
     Indication: ANAESTHESIA
     Dosage: 100 MILLIGRAM, TOTAL
     Route: 042
     Dates: start: 20190911
  9. CELOCURINE [Suspect]
     Active Substance: SUCCINYLCHOLINE
     Indication: ANAESTHESIA
     Dosage: 60 MILLIGRAM, TOTAL
     Route: 042
     Dates: start: 20190911
  10. ATRACURIUM [Suspect]
     Active Substance: ATRACURIUM
     Indication: ANAESTHESIA
     Dosage: 40 MILLIGRAM, TOTAL
     Route: 042
     Dates: start: 20190911
  11. PARACETAMOL [Suspect]
     Active Substance: ACETAMINOPHEN
     Indication: ANAESTHESIA
     Dosage: 1000 MILLIGRAM, TOTAL
     Route: 042
     Dates: start: 20190911
  12. KETAMINE [Suspect]
     Active Substance: KETAMINE
     Indication: ANAESTHESIA
     Dosage: 50 MILLIGRAM, TOTAL
     Route: 042
     Dates: start: 20190911
  13. NEFOPAM HYDROCHLORIDE [Suspect]
     Active Substance: NEFOPAM HYDROCHLORIDE
     Indication: ANAESTHESIA
     Dosage: 20 MILLIGRAM, TOTAL
     Route: 042
     Dates: start: 20190911

REACTIONS (1)
  - Urticaria [Recovered/Resolved]

NARRATIVE: CASE EVENT DATE: 20190911
